FAERS Safety Report 24192758 (Version 3)
Quarter: 2025Q2

REPORT INFORMATION
  Report Type: Report from Study
  Country: CA (occurrence: CA)
  Receive Date: 20240809
  Receipt Date: 20250404
  Transmission Date: 20250717
  Serious: Yes (Other)
  Sender: JOHNSON AND JOHNSON
  Company Number: CA-JNJFOC-20240815548

PATIENT
  Age: 34 Year
  Sex: Female

DRUGS (1)
  1. SIMPONI [Suspect]
     Active Substance: GOLIMUMAB
     Indication: Ankylosing spondylitis
     Route: 058
     Dates: start: 20210522

REACTIONS (3)
  - Pertussis [Not Recovered/Not Resolved]
  - Pneumonia [Unknown]
  - Bronchitis [Unknown]

NARRATIVE: CASE EVENT DATE: 20240701
